FAERS Safety Report 24026856 (Version 3)
Quarter: 2024Q3

REPORT INFORMATION
  Report Type: Report from Study
  Country: IT (occurrence: IT)
  Receive Date: 20240628
  Receipt Date: 20240710
  Transmission Date: 20241017
  Serious: No
  Sender: ROCHE
  Company Number: IT-ROCHE-3159218

PATIENT
  Age: 46 Year
  Sex: Female
  Weight: 58.0 kg

DRUGS (2)
  1. ALECTINIB [Suspect]
     Active Substance: ALECTINIB
     Indication: Non-small cell lung cancer metastatic
     Route: 048
     Dates: start: 20220315
  2. AZITHROMYCIN [Concomitant]
     Active Substance: AZITHROMYCIN
     Indication: COVID-19
     Route: 048
     Dates: start: 20220708, end: 20220710

REACTIONS (2)
  - Constipation [Recovered/Resolved]
  - Uterine inflammation [Recovered/Resolved]

NARRATIVE: CASE EVENT DATE: 20220407
